FAERS Safety Report 12423477 (Version 1)
Quarter: 2016Q2

REPORT INFORMATION
  Report Type: Spontaneous
  Country: US (occurrence: US)
  Receive Date: 20160601
  Receipt Date: 20160601
  Transmission Date: 20160815
  Serious: No
  Sender: FDA-Public Use
  Company Number: US-NOVEN PHARMACEUTICALS, INC.-US2015000276

PATIENT
  Age: 37 Year
  Sex: Female

DRUGS (2)
  1. XYREM [Concomitant]
     Active Substance: SODIUM OXYBATE
     Dosage: 4.25 G, BID
  2. DAYTRANA [Suspect]
     Active Substance: METHYLPHENIDATE
     Indication: NARCOLEPSY
     Dosage: 20 MG, UNK
     Route: 062
     Dates: start: 20150510

REACTIONS (3)
  - Drug prescribing error [Unknown]
  - No adverse event [Unknown]
  - Product quality issue [Unknown]

NARRATIVE: CASE EVENT DATE: 201505
